FAERS Safety Report 5620172-0 (Version None)
Quarter: 2008Q1

REPORT INFORMATION
  Report Type: 
  Country: None (occurrence: None)
  Receive Date: 20080208
  Receipt Date: 20080131
  Transmission Date: 20080703
  Serious: Yes (Death, Hospitalization)
  Sender: FDA-Public Use
  Company Number: MX-ROCHE-535803

PATIENT
  Age: 26 Year
  Sex: Female
  Weight: 55 kg

DRUGS (4)
  1. CAPECITABINE [Suspect]
     Indication: GASTRIC CANCER
     Dosage: GIVEN ON DAYS ONE TO FOURTEEN EVERY THREE WEEKS.
     Route: 048
     Dates: start: 20071012, end: 20071129
  2. TRASTUZUMAB [Suspect]
     Indication: GASTRIC CANCER
     Dosage: DOSAGE FORM REPORTED AS INFUSION. AS PER PROTOCOL 8 MG/KG GIVEN AS LOADING DOSE ON DAY ONE.
     Route: 042
     Dates: start: 20071012
  3. TRASTUZUMAB [Suspect]
     Dosage: DOSAGE FORM REPORTED AS INFUSION. AS PER PROTOCOL 6 MG/KG GIVEN AS MAINENANCE DOSE ON DAY ONE EVERY+
     Route: 042
     Dates: start: 20071102
  4. CISPLATIN [Suspect]
     Indication: GASTRIC CANCER
     Dosage: DOSAGE FORM REPORTED AS INFUSION. GIVEN ON DAY ONE EVERY THREE WEEKS.
     Route: 042
     Dates: start: 20071012

REACTIONS (1)
  - GASTRITIS [None]
